FAERS Safety Report 4315133-8 (Version None)
Quarter: 2004Q1

REPORT INFORMATION
  Report Type: 
  Country: None (occurrence: None)
  Receive Date: 20040310
  Receipt Date: 20040304
  Transmission Date: 20041129
  Serious: Yes (Hospitalization)
  Sender: FDA-Public Use
  Company Number: DE-GLAXOSMITHKLINE-A0501140A

PATIENT
  Age: 60 Year
  Sex: Male

DRUGS (2)
  1. NAVELBINE [Suspect]
     Indication: NON-SMALL CELL LUNG CANCER
     Dosage: 80MGM2 SEE DOSAGE TEXT
     Route: 048
     Dates: start: 20031211
  2. CARBOPLATIN [Suspect]
     Indication: NON-SMALL CELL LUNG CANCER
     Dosage: 485MG CUMULATIVE DOSE
     Route: 042
     Dates: start: 20031211

REACTIONS (4)
  - CONDITION AGGRAVATED [None]
  - NEUTROPHIL COUNT DECREASED [None]
  - TONSILLITIS [None]
  - WHITE BLOOD CELL COUNT DECREASED [None]
